FAERS Safety Report 25573264 (Version 4)
Quarter: 2025Q3

REPORT INFORMATION
  Report Type: Spontaneous
  Country: IL (occurrence: IL)
  Receive Date: 20250717
  Receipt Date: 20250903
  Transmission Date: 20251021
  Serious: No
  Sender: PFIZER
  Company Number: IL-PFIZER INC-PV202500084242

PATIENT
  Age: 11 Year
  Sex: Female

DRUGS (2)
  1. NGENLA [Suspect]
     Active Substance: SOMATROGON-GHLA
     Dosage: 18 MG, WEEKLY  (INJECTED IN THE ARM)
     Route: 058
     Dates: start: 20250609
  2. NGENLA [Suspect]
     Active Substance: SOMATROGON-GHLA
     Dosage: 60 MG, WEEKLY
     Route: 058

REACTIONS (3)
  - Injection site pain [Unknown]
  - Lack of injection site rotation [Unknown]
  - Device leakage [Unknown]
